FAERS Safety Report 5709691-6 (Version None)
Quarter: 2008Q2

REPORT INFORMATION
  Report Type: 
  Country: None (occurrence: None)
  Receive Date: 20080418
  Receipt Date: 20080409
  Transmission Date: 20081010
  Serious: Yes (Other)
  Sender: FDA-Public Use
  Company Number: PHEH2008US03699

PATIENT
  Sex: Female

DRUGS (1)
  1. VIVELLE-DOT [Suspect]
     Route: 062
     Dates: start: 20080225

REACTIONS (2)
  - SURGERY [None]
  - VISION BLURRED [None]
